FAERS Safety Report 15922692 (Version 2)
Quarter: 2019Q1

REPORT INFORMATION
  Report Type: Spontaneous
  Country: US (occurrence: US)
  Receive Date: 20190205
  Receipt Date: 20190219
  Transmission Date: 20190417
  Serious: No
  Sender: FDA-Public Use
  Company Number: US-ALLERGAN-1809491US

PATIENT
  Sex: Female

DRUGS (2)
  1. LANSOPRAZOLE. [Concomitant]
     Active Substance: LANSOPRAZOLE
     Indication: PHARYNGEAL INFLAMMATION
     Dosage: UNK
     Route: 065
     Dates: start: 20180126
  2. BOTOX [Suspect]
     Active Substance: ONABOTULINUMTOXINA
     Indication: HYPERHIDROSIS
     Dosage: UNK, SINGLE
     Route: 030
     Dates: start: 20180131, end: 20180131

REACTIONS (2)
  - Pharyngeal disorder [Not Recovered/Not Resolved]
  - Dysphagia [Not Recovered/Not Resolved]
